FAERS Safety Report 25712096 (Version 2)
Quarter: 2025Q4

REPORT INFORMATION
  Report Type: Spontaneous
  Country: US (occurrence: US)
  Receive Date: 20250821
  Receipt Date: 20251010
  Transmission Date: 20260118
  Serious: Yes (Other)
  Sender: PFIZER
  Company Number: US-PFIZER INC-202500166678

PATIENT
  Age: 3 Year
  Sex: Female
  Weight: 13 kg

DRUGS (3)
  1. SOMATROPIN [Suspect]
     Active Substance: SOMATROPIN
     Indication: Autoimmune thyroiditis
     Dosage: 0.2 MG/DAY 7 DAYS/WEEK
     Route: 058
  2. SOMATROPIN [Suspect]
     Active Substance: SOMATROPIN
     Indication: Small for dates baby
  3. SOMATROPIN [Suspect]
     Active Substance: SOMATROPIN
     Indication: Short stature

REACTIONS (3)
  - Anti-thyroid antibody increased [Unknown]
  - Blood thyroid stimulating hormone increased [Unknown]
  - Product prescribing error [Unknown]

NARRATIVE: CASE EVENT DATE: 20250630
